FAERS Safety Report 23504904 (Version 1)
Quarter: 2024Q1

REPORT INFORMATION
  Report Type: Spontaneous
  Country: GB (occurrence: GB)
  Receive Date: 20240209
  Receipt Date: 20240209
  Transmission Date: 20240410
  Serious: No
  Sender: FDA-Public Use
  Company Number: None

PATIENT
  Age: 80 Year
  Sex: Male
  Weight: 76.2 kg

DRUGS (18)
  1. GABAPENTIN [Suspect]
     Active Substance: GABAPENTIN
     Indication: Product used for unknown indication
     Dosage: UNK (CAPSULE)
     Route: 048
  2. ALLOPURINOL [Concomitant]
     Active Substance: ALLOPURINOL
     Indication: Product used for unknown indication
     Dosage: 1 DOSAGE FORM, QD (1 TABLET ONCE A DAY)
     Route: 065
     Dates: start: 20230113
  3. AMOXICILLIN [Concomitant]
     Active Substance: AMOXICILLIN
     Indication: Product used for unknown indication
     Dosage: 1 DOSAGE FORM, TID (1 TABLET THREE TIMES A DAY)
     Route: 065
     Dates: start: 20230201
  4. FLUTICASONE FUROATE [Concomitant]
     Active Substance: FLUTICASONE FUROATE
     Indication: Product used for unknown indication
     Dosage: UNK, QD (ONE SPRAY EVERY DAY, AS SUGGESTED BY ENT SPECIALIST)
     Route: 065
     Dates: start: 20230112
  5. CARBOCYSTEINE [Concomitant]
     Active Substance: CARBOCYSTEINE
     Indication: Product used for unknown indication
     Dosage: 1 DOSAGE FORM, BID (1 CAPSULE TWICE A DAY) (375 MILLIGRAM)
     Route: 065
     Dates: start: 20230220
  6. CARBOCYSTEINE [Concomitant]
     Active Substance: CARBOCYSTEINE
     Dosage: UNK, TID (250MG/5ML  5MLS THREE TIMES DAILY) ORAL SOLUTION
     Route: 048
     Dates: start: 20230113
  7. CILOXAN [Concomitant]
     Active Substance: CIPROFLOXACIN HYDROCHLORIDE
     Indication: Product used for unknown indication
     Dosage: UNK, QID (APPLY 4 TIMES DAY)
     Route: 065
     Dates: start: 20230203
  8. FERROUS FUMARATE [Concomitant]
     Active Substance: FERROUS FUMARATE
     Indication: Product used for unknown indication
     Dosage: 1 DOSAGE FORM, QD (1 CAPSULE DAILY)
     Route: 065
     Dates: start: 20230202
  9. FOSFOMYCIN [Concomitant]
     Active Substance: FOSFOMYCIN
     Indication: Product used for unknown indication
     Dosage: UNK IMMEDIATELY AFTER DISSOLVING IN WATER AT BED TIME) (GRANULES SACHETS)
     Route: 065
     Dates: start: 20230207
  10. HYDROXOCOBALAMIN [Concomitant]
     Active Substance: HYDROXOCOBALAMIN
     Indication: Product used for unknown indication
     Dosage: UNK, IMMEDIATELY IM INJECTION TO BE GIVEN BY NURSE (SOLUTION FOR INJECTION AMPOULES)
     Route: 030
     Dates: start: 20230210
  11. MIRABEGRON [Concomitant]
     Active Substance: MIRABEGRON
     Indication: Product used for unknown indication
     Dosage: 1 DOSAGE FORM, QD, TAKE ONE TABLET ONCE A DAY
     Route: 065
     Dates: start: 20230124
  12. NIFEDIPINE [Concomitant]
     Active Substance: NIFEDIPINE
     Indication: Product used for unknown indication
     Dosage: 10 MILLIGRAM (MODIFIED-RELEASE CAPSULES
     Route: 065
  13. NIFEDIPINE [Concomitant]
     Active Substance: NIFEDIPINE
     Dosage: 20 MILLIGRAM, QD (MODIFIED-RELEASE CAPSULES)
     Route: 065
  14. NITROFURANTOIN [Concomitant]
     Active Substance: NITROFURANTOIN
     Indication: Product used for unknown indication
     Dosage: 1 DOSAGE FORM, BID (TAKE ONE CAPSULE TWICE A DAY) MODIFIED-RELEASE CAPSULES
     Route: 065
     Dates: start: 20230303
  15. OMEPRAZOLE [Concomitant]
     Active Substance: OMEPRAZOLE
     Indication: Product used for unknown indication
     Dosage: 1 DOSAGE FORM, QD, (ONE CAPSULE ONE DAY AS SUGGESTED BY GASTRO OR ENTRO (GASTRO-RESISTANT CAPSULE)LO
     Route: 065
     Dates: start: 20230315
  16. PREGABALIN [Concomitant]
     Active Substance: PREGABALIN
     Indication: Product used for unknown indication
     Dosage: UNK, HS, EVERY DAY AT NIGHT
     Route: 065
     Dates: start: 20230210
  17. RILUZOLE [Concomitant]
     Active Substance: RILUZOLE
     Indication: Product used for unknown indication
     Dosage: 1 DOSAGE FORM, BID (1 TABLET TWICE DAILY)
     Route: 065
     Dates: start: 20230210
  18. VALSARTAN [Concomitant]
     Active Substance: VALSARTAN
     Indication: Product used for unknown indication
     Dosage: 1 DOSAGE FORM, BID (ONE CAPSULE TWICE DAILY)
     Route: 065
     Dates: start: 20230210

REACTIONS (1)
  - Rash [Unknown]
